FAERS Safety Report 9594199 (Version 3)
Quarter: 2013Q4

REPORT INFORMATION
  Report Type: Spontaneous
  Country: US (occurrence: None)
  Receive Date: 20131002
  Receipt Date: 20131122
  Transmission Date: 20140711
  Serious: Yes (Death, Other)
  Sender: FDA-Public Use
  Company Number: SYM-2013-11107

PATIENT
  Age: 59 Year
  Sex: Female

DRUGS (2)
  1. XENAZINE [Suspect]
     Indication: DYSKINESIA
     Dosage: 2 IN THE MORNING 1 IN THE AFTERNOON
     Route: 048
     Dates: start: 20100804, end: 20130925
  2. XENAZINE [Suspect]
     Indication: DYSTONIA
     Dosage: 2 IN THE MORNING 1 IN THE AFTERNOON
     Route: 048
     Dates: start: 20100804, end: 20130925

REACTIONS (1)
  - Refusal of treatment by patient [None]
